FAERS Safety Report 9494247 (Version 1)
Quarter: 2013Q3

REPORT INFORMATION
  Report Type: Report from Study
  Country: US (occurrence: US)
  Receive Date: 20130903
  Receipt Date: 20130903
  Transmission Date: 20140515
  Serious: No
  Sender: FDA-Public Use
  Company Number: US-VERTEX PHARMACEUTICALS INC-AE-2012-011298

PATIENT
  Sex: Male

DRUGS (8)
  1. INCIVEK [Suspect]
     Indication: HEPATITIS C
     Route: 048
  2. PEGASYS [Concomitant]
     Indication: HEPATITIS C
  3. RIBASPHERE [Concomitant]
  4. DIOVAN [Concomitant]
  5. ADVIL [Concomitant]
  6. FISH OIL [Concomitant]
  7. ASPIRIN LOW [Concomitant]
  8. TYLENOL [Concomitant]

REACTIONS (6)
  - Influenza like illness [Unknown]
  - Dry skin [Unknown]
  - Abdominal pain upper [Recovered/Resolved]
  - Fatigue [Unknown]
  - Dysgeusia [Unknown]
  - Vomiting [Recovered/Resolved]
